FAERS Safety Report 7601735-X (Version None)
Quarter: 2011Q2

REPORT INFORMATION
  Report Type: 
  Country: None (occurrence: None)
  Receive Date: 20110630
  Receipt Date: 20110621
  Transmission Date: 20111010
  Serious: Yes (Other)
  Sender: FDA-Public Use
  Company Number: AT-S-20110017

PATIENT
  Age: 5 Year
  Sex: Female

DRUGS (1)
  1. ESTROGEL [Suspect]
     Indication: MENOPAUSAL SYMPTOMS
     Dosage: 2.5 GRAMS DAILY AT NIGHT
     Dates: start: 20101230

REACTIONS (4)
  - INTENTIONAL DRUG MISUSE [None]
  - NIPPLE PAIN [None]
  - ACCIDENTAL EXPOSURE [None]
  - BREAST DISORDER FEMALE [None]
